FAERS Safety Report 26140940 (Version 2)
Quarter: 2025Q4

REPORT INFORMATION
  Report Type: Spontaneous
  Country: EU (occurrence: EU)
  Receive Date: 20251210
  Receipt Date: 20251219
  Transmission Date: 20260118
  Serious: Yes (Other)
  Sender: ROCHE
  Company Number: EU-ROCHE-10000450045

PATIENT
  Age: 86 Year
  Sex: Female

DRUGS (2)
  1. VABYSMO [Suspect]
     Active Substance: FARICIMAB-SVOA
     Indication: Neovascular age-related macular degeneration
  2. VABYSMO [Suspect]
     Active Substance: FARICIMAB-SVOA

REACTIONS (4)
  - Macular fibrosis [Unknown]
  - Suspected product quality issue [Unknown]
  - Retinitis [Unknown]
  - Retinoschisis [Unknown]

NARRATIVE: CASE EVENT DATE: 20251128
